FAERS Safety Report 7482118-2 (Version None)
Quarter: 2011Q2

REPORT INFORMATION
  Report Type: 
  Country: None (occurrence: None)
  Receive Date: 20110516
  Receipt Date: 20110506
  Transmission Date: 20111010
  Serious: Yes (Hospitalization, Disabling)
  Sender: FDA-Public Use
  Company Number: FR-PFIZER INC-2011102318

PATIENT
  Age: 81 Year
  Sex: Female

DRUGS (1)
  1. CORDARONE [Suspect]
     Indication: PRODUCT USED FOR UNKNOWN INDICATION
     Dosage: 200 MG, 1X/DAY
     Route: 048
     Dates: end: 20110317

REACTIONS (5)
  - RETINOPATHY HYPERTENSIVE [None]
  - PAPILLOEDEMA [None]
  - HEADACHE [None]
  - VISUAL ACUITY REDUCED [None]
  - NEUROPATHY PERIPHERAL [None]
